FAERS Safety Report 5048345-9 (Version None)
Quarter: 2006Q3

REPORT INFORMATION
  Report Type: 
  Country: None (occurrence: None)
  Receive Date: 20060711
  Receipt Date: 20060601
  Transmission Date: 20061208
  Serious: Yes (Death)
  Sender: FDA-Public Use
  Company Number: TH-BOEHRINGER INGELHEIM PHARMACEUTICALS, INC.-2006-DE-02841GD

PATIENT

DRUGS (4)
  1. NEVIRAPINE [Suspect]
     Indication: HIV INFECTION
     Dosage: 200 MG ONCE DAILY FOR 2 WEEKS, FOLLOWED BY 200 MG TWICE DAILY
  2. FLUCONAZOLE [Suspect]
     Indication: CRYPTOCOCCOSIS
     Dosage: 400 MG PER WEEK
  3. FLUCONAZOLE [Suspect]
     Indication: PROPHYLAXIS
  4. ANTIRETROVIRAL DRUGS [Suspect]
     Indication: HIV INFECTION

REACTIONS (1)
  - MYCOBACTERIUM AVIUM COMPLEX INFECTION [None]
